FAERS Safety Report 9060214 (Version 1)
Quarter: 2013Q1

REPORT INFORMATION
  Report Type: Spontaneous
  Country: US (occurrence: None)
  Receive Date: 20130118
  Receipt Date: 20130118
  Transmission Date: 20140127
  Serious: Yes (Death, Other)
  Sender: FDA-Public Use
  Company Number: AUR-APL-2013-00328

PATIENT
  Age: 55 Year
  Sex: Male

DRUGS (6)
  1. CYCLOBENZAPRINE [Suspect]
  2. GABAPENTIN [Suspect]
  3. ALPRAZOLAM (ALPRAZOLAM) [Suspect]
  4. DROPERIDOL/FENTANYL [Suspect]
     Route: 048
  5. CANNABIS SATIVA SUBSP. INDICA TOP [Suspect]
  6. HYDROXYZINE [Suspect]

REACTIONS (3)
  - Toxicity to various agents [None]
  - Cardiac arrest [None]
  - Respiratory arrest [None]
